FAERS Safety Report 16398198 (Version 1)
Quarter: 2019Q3

REPORT INFORMATION
  Report Type: Spontaneous
  Country: US (occurrence: US)
  Receive Date: 20190605
  Receipt Date: 20190605
  Transmission Date: 20191004
  Serious: Yes (Hospitalization)
  Sender: FDA-Public Use
  Company Number: None

PATIENT
  Age: 67 Year
  Sex: Female

DRUGS (8)
  1. XARLETO 15MG TABLET [Concomitant]
     Dates: start: 20190601
  2. CIPROFLOXACIN TABLET 500MG [Concomitant]
     Dates: start: 20190513, end: 20190515
  3. XELJANZ [Suspect]
     Active Substance: TOFACITINIB CITRATE
     Indication: RHEUMATOID ARTHRITIS
     Route: 048
     Dates: start: 20180116
  4. PROMETHASONE/CODEIN SOL 6.25MG-10MG [Concomitant]
     Dates: start: 20190531
  5. FOLIC ACID TABLET 1000MCG [Concomitant]
     Dates: start: 20190330
  6. PREDNISONE TABLET 5MG [Concomitant]
     Dates: start: 20190531
  7. ATORVASTATIN 10MG TABLET [Concomitant]
     Active Substance: ATORVASTATIN
     Dates: start: 20190514
  8. XARELTO [Concomitant]
     Active Substance: RIVAROXABAN
     Dates: start: 20190601

REACTIONS (1)
  - Thrombosis [None]

NARRATIVE: CASE EVENT DATE: 20190501
